FAERS Safety Report 16372293 (Version 1)
Quarter: 2019Q2

REPORT INFORMATION
  Report Type: Spontaneous
  Country: US (occurrence: US)
  Receive Date: 20190530
  Receipt Date: 20190530
  Transmission Date: 20190711
  Serious: No
  Sender: FDA-Public Use
  Company Number: US-PERRIGO-18US010542

PATIENT
  Age: 70 Year
  Sex: Female
  Weight: 61.22 kg

DRUGS (2)
  1. TRIAMCINOLONE ACETONIDE. [Suspect]
     Active Substance: TRIAMCINOLONE ACETONIDE
     Dosage: THIN LAYER, PRN
     Route: 061
     Dates: start: 201808, end: 201810
  2. TRIAMCINOLONE ACETONIDE. [Suspect]
     Active Substance: TRIAMCINOLONE ACETONIDE
     Indication: ECZEMA
     Dosage: THIN LAYER, PRN
     Route: 061
     Dates: start: 2015, end: 201808

REACTIONS (1)
  - Drug ineffective [Unknown]

NARRATIVE: CASE EVENT DATE: 201808
